FAERS Safety Report 21519884 (Version 1)
Quarter: 2022Q4

REPORT INFORMATION
  Report Type: Spontaneous
  Country: US (occurrence: US)
  Receive Date: 20221028
  Receipt Date: 20221028
  Transmission Date: 20230113
  Serious: Yes (Hospitalization)
  Sender: FDA-Public Use
  Company Number: US-MYLANLABS-2022M1118032

PATIENT
  Age: 24 Year

DRUGS (6)
  1. DEXAMETHASONE [Suspect]
     Active Substance: DEXAMETHASONE
     Indication: COVID-19
     Dosage: UNK
     Route: 065
  2. REMDESIVIR [Concomitant]
     Active Substance: REMDESIVIR
     Indication: COVID-19
     Dosage: UNK
     Route: 065
  3. AVIPTADIL [Concomitant]
     Active Substance: AVIPTADIL
     Indication: Acute respiratory distress syndrome
     Dosage: UNK
     Route: 042
  4. AVIPTADIL [Concomitant]
     Active Substance: AVIPTADIL
     Indication: COVID-19
  5. AVIPTADIL [Concomitant]
     Active Substance: AVIPTADIL
     Indication: Acute respiratory distress syndrome
     Dosage: UNK
  6. AVIPTADIL [Concomitant]
     Active Substance: AVIPTADIL
     Indication: COVID-19

REACTIONS (2)
  - Drug ineffective for unapproved indication [Unknown]
  - Off label use [Unknown]
